FAERS Safety Report 9726365 (Version 1)
Quarter: 2013Q4

REPORT INFORMATION
  Report Type: Spontaneous
  Country: US (occurrence: None)
  Receive Date: 20131202
  Receipt Date: 20131202
  Transmission Date: 20140711
  Serious: Yes (Life-Threatening, Hospitalization)
  Sender: FDA-Public Use
  Company Number: None

PATIENT
  Age: 54 Year
  Sex: Female

DRUGS (11)
  1. LACOSAMIDE [Suspect]
     Indication: CONVULSION
     Route: 048
  2. TOPIRAMATE [Concomitant]
  3. SIMVASTATIN [Concomitant]
  4. ASPIRIN [Concomitant]
  5. CHOLECALCIFEROL [Concomitant]
  6. ESCITALOPRAM [Concomitant]
  7. GABAPENTIN [Concomitant]
  8. LAMOTRIGINE [Concomitant]
  9. MULTIVITAMIN [Concomitant]
  10. PANTOPRAZOLE [Concomitant]
  11. ROPINIROLE [Concomitant]

REACTIONS (7)
  - Overdose [None]
  - Suicide attempt [None]
  - Somnolence [None]
  - Unresponsive to stimuli [None]
  - Metabolic acidosis [None]
  - Pneumonia [None]
  - Convulsion [None]
